FAERS Safety Report 8534451-0 (Version None)
Quarter: 2012Q3

REPORT INFORMATION
  Report Type: 
  Country: None (occurrence: None)
  Receive Date: 20120724
  Receipt Date: 20120717
  Transmission Date: 20120928
  Serious: Yes (Hospitalization, Other)
  Sender: FDA-Public Use
  Company Number: JP-VERTEX PHARMACEUTICALS INC.-AE-2012-005897

PATIENT
  Age: 65 Year
  Sex: Male

DRUGS (15)
  1. VITAMEDIN [Concomitant]
     Route: 048
  2. RIBAVIRIN [Concomitant]
     Indication: HEPATITIS C
     Route: 048
     Dates: start: 20120116, end: 20120214
  3. PEGASYS [Concomitant]
     Indication: HEPATITIS C
     Route: 058
     Dates: start: 20120116, end: 20120414
  4. RIBAVIRIN [Concomitant]
     Route: 048
     Dates: start: 20120215, end: 20120221
  5. RIBAVIRIN [Concomitant]
     Route: 048
     Dates: start: 20120516, end: 20120626
  6. RIBAVIRIN [Concomitant]
     Route: 048
     Dates: start: 20120222, end: 20120306
  7. AMPICILLIN [Concomitant]
     Indication: ADVERSE EVENT
     Route: 048
     Dates: start: 20120413, end: 20120414
  8. TELAVIC (TELAPREVIR) [Suspect]
     Route: 048
     Dates: start: 20120229, end: 20120410
  9. RIBAVIRIN [Concomitant]
     Route: 048
     Dates: start: 20120307, end: 20120414
  10. PEGASYS [Concomitant]
     Route: 058
     Dates: start: 20120419, end: 20120627
  11. TELAVIC (TELAPREVIR) [Suspect]
     Indication: HEPATITIS C
     Route: 048
     Dates: start: 20120116, end: 20120228
  12. RIBAVIRIN [Concomitant]
     Route: 048
     Dates: end: 20120410
  13. LOXOPROFEN SODIUM HYDRATE [Concomitant]
     Route: 048
     Dates: start: 20120314, end: 20120413
  14. RIBAVIRIN [Concomitant]
     Route: 048
     Dates: start: 20120502, end: 20120515
  15. URSO 250 [Concomitant]
     Route: 048

REACTIONS (3)
  - STOMATITIS [None]
  - HAEMOGLOBIN DECREASED [None]
  - WHITE BLOOD CELL COUNT DECREASED [None]
